FAERS Safety Report 9197994 (Version 2)
Quarter: 2013Q3

REPORT INFORMATION
  Report Type: Spontaneous
  Country: US (occurrence: US)
  Receive Date: 20130328
  Receipt Date: 20130913
  Transmission Date: 20140515
  Serious: Yes (Hospitalization)
  Sender: FDA-Public Use
  Company Number: US-B.I. PHARMACEUTICALS,INC./RIDGEFIELD-2013-BI-07889BP

PATIENT
  Sex: Female
  Weight: 53.98 kg

DRUGS (9)
  1. PRADAXA [Suspect]
     Indication: ATRIAL FIBRILLATION
     Dosage: 300 MG
     Dates: start: 201102, end: 20110329
  2. LASIX [Concomitant]
     Dosage: 20 MG
     Route: 048
  3. LIPITOR [Concomitant]
     Dosage: 80 MG
     Route: 048
  4. TOPROL ER [Concomitant]
     Dosage: 25 MG
     Route: 048
  5. BACTRIM DS [Concomitant]
     Indication: URINARY TRACT INFECTION
     Route: 048
  6. TAMSULOSIN [Concomitant]
     Dosage: 0.4 MG
     Route: 048
  7. TEMAZEPAM [Concomitant]
     Dosage: 30 MG
     Route: 048
  8. PHENERGAN [Concomitant]
     Route: 048
  9. CELEBREX [Concomitant]
     Dosage: 400 MG
     Route: 048

REACTIONS (7)
  - Gastrointestinal haemorrhage [Recovered/Resolved]
  - Hypovolaemic shock [Not Recovered/Not Resolved]
  - Haemorrhagic anaemia [Unknown]
  - Coagulopathy [Unknown]
  - Acute respiratory failure [Recovered/Resolved]
  - Acute myocardial infarction [Unknown]
  - Haemoptysis [Unknown]
